FAERS Safety Report 20057803 (Version 14)
Quarter: 2025Q2

REPORT INFORMATION
  Report Type: Spontaneous
  Country: US (occurrence: US)
  Receive Date: 20211111
  Receipt Date: 20250402
  Transmission Date: 20250716
  Serious: No
  Sender: PFIZER
  Company Number: US-PFIZER INC-202101210175

PATIENT
  Age: 83 Year
  Sex: Female
  Weight: 66.22 kg

DRUGS (3)
  1. BRAFTOVI [Suspect]
     Active Substance: ENCORAFENIB
     Indication: Colon cancer
     Dosage: 300 MG, DAILY (4 CAPSULES OF 75 MG)
     Route: 048
  2. BRAFTOVI [Suspect]
     Active Substance: ENCORAFENIB
     Indication: Lung neoplasm malignant
     Dosage: 225 MG, DAILY (TAKE 3 CAPSULES (225 MG TOTAL) BY MOUTH DAILY)
     Route: 048
  3. LOMOTIL [Concomitant]
     Active Substance: ATROPINE SULFATE\DIPHENOXYLATE HYDROCHLORIDE
     Indication: Diarrhoea
     Dosage: 1 DF, 4X/DAY (TAKE 1 TABLET BY MOUTH 4 (FOUR) TIMES A DAY AS NEEDED FOR DIARRHEA MAX DAILY AMOUNT: 4
     Route: 048

REACTIONS (1)
  - Hyperkeratosis [Not Recovered/Not Resolved]

NARRATIVE: CASE EVENT DATE: 20210901
